FAERS Safety Report 24261782 (Version 3)
Quarter: 2025Q3

REPORT INFORMATION
  Report Type: Spontaneous
  Country: US (occurrence: US)
  Receive Date: 20240829
  Receipt Date: 20250826
  Transmission Date: 20251021
  Serious: No
  Sender: ALEXION PHARMACEUTICALS
  Company Number: 2024A194526

PATIENT
  Age: 74 Year
  Sex: Female

DRUGS (1)
  1. SYMBICORT [Suspect]
     Active Substance: BUDESONIDE\FORMOTEROL FUMARATE DIHYDRATE
     Indication: Asthma

REACTIONS (14)
  - Heart rate increased [Unknown]
  - Supraventricular tachycardia [Unknown]
  - Eosinophil count increased [Unknown]
  - Telangiectasia [Unknown]
  - Tachycardia [Unknown]
  - Pulmonary function test [Unknown]
  - Skin disorder [Unknown]
  - Cardiac disorder [Unknown]
  - Illness [Unknown]
  - Rash [Unknown]
  - Spider vein [Unknown]
  - Livedo reticularis [Not Recovered/Not Resolved]
  - Sleep disorder [Unknown]
  - Dizziness [Unknown]

NARRATIVE: CASE EVENT DATE: 20240101
